FAERS Safety Report 8430012-2 (Version None)
Quarter: 2012Q2

REPORT INFORMATION
  Report Type: 
  Country: None (occurrence: None)
  Receive Date: 20120612
  Receipt Date: 20120530
  Transmission Date: 20120825
  Serious: Yes (Hospitalization, Other)
  Sender: FDA-Public Use
  Company Number: GB-ROCHE-1049491

PATIENT
  Age: 36 Year
  Sex: Female

DRUGS (17)
  1. FOLIC ACID [Suspect]
     Indication: PRODUCT USED FOR UNKNOWN INDICATION
     Route: 048
  2. RAMIPRIL [Concomitant]
  3. CLOZAPINE [Suspect]
     Route: 048
     Dates: start: 20080605
  4. FERROUS SULFATE TAB [Suspect]
     Indication: PRODUCT USED FOR UNKNOWN INDICATION
  5. PERINDOPRIL ERBUMINE [Suspect]
     Indication: PRODUCT USED FOR UNKNOWN INDICATION
     Route: 048
  6. ATORVASTATIN CALCIUM [Concomitant]
  7. LANSOPRAZOLE [Suspect]
     Indication: PRODUCT USED FOR UNKNOWN INDICATION
     Route: 048
  8. BENDROFLUMETHIAZIDE [Concomitant]
     Indication: HYPERTENSION
  9. DIAZEPAM [Suspect]
     Indication: PRODUCT USED FOR UNKNOWN INDICATION
  10. LACTULOSE [Suspect]
     Indication: PRODUCT USED FOR UNKNOWN INDICATION
     Route: 065
  11. CLOZAPINE [Suspect]
     Route: 048
     Dates: start: 20060605, end: 20060713
  12. CLOZAPINE [Suspect]
     Route: 048
     Dates: start: 20080519
  13. ZOPICLONE [Suspect]
     Indication: PRODUCT USED FOR UNKNOWN INDICATION
  14. CLOZAPINE [Suspect]
     Indication: SCHIZOPHRENIA
     Route: 048
     Dates: start: 20050501, end: 20050519
  15. FUROSEMIDE [Concomitant]
  16. TRIMETHOPRIM [Suspect]
     Indication: URINARY TRACT INFECTION
  17. ARIPIPRAZOLE [Concomitant]

REACTIONS (20)
  - SINUS TACHYCARDIA [None]
  - STAPHYLOCOCCAL INFECTION [None]
  - BODY MASS INDEX DECREASED [None]
  - THROMBOCYTOSIS [None]
  - URINARY TRACT INFECTION [None]
  - SKIN DISORDER [None]
  - HIATUS HERNIA [None]
  - MEAN CELL VOLUME DECREASED [None]
  - PYREXIA [None]
  - WHITE BLOOD CELL COUNT INCREASED [None]
  - CARDIAC MURMUR [None]
  - CONSTIPATION [None]
  - NEUTROPHIL COUNT INCREASED [None]
  - MALAISE [None]
  - ABDOMINAL TENDERNESS [None]
  - DIABETES MELLITUS [None]
  - IRON DEFICIENCY ANAEMIA [None]
  - HYPERTENSION [None]
  - MONOCYTE COUNT INCREASED [None]
  - WHITE BLOOD CELL DISORDER [None]
